FAERS Safety Report 4797292-6 (Version None)
Quarter: 2005Q4

REPORT INFORMATION
  Report Type: 
  Country: None (occurrence: None)
  Receive Date: 20051013
  Receipt Date: 20051008
  Transmission Date: 20060501
  Serious: Yes (Other)
  Sender: FDA-Public Use
  Company Number: GB-GLAXOSMITHKLINE-B0396659A

PATIENT
  Age: 66 Year
  Sex: Female
  Weight: 62 kg

DRUGS (4)
  1. AVANDIA [Suspect]
     Indication: DIABETES MELLITUS
     Dosage: 4MG UNKNOWN
     Route: 048
     Dates: start: 20050421, end: 20050929
  2. CITALOPRAM [Concomitant]
     Dosage: 10MG PER DAY
     Route: 065
  3. METFORMIN [Concomitant]
     Dosage: 1000MG TWICE PER DAY
     Route: 065
     Dates: start: 20001121
  4. IRBESARTAN [Concomitant]
     Dosage: 150MG PER DAY
     Route: 065
     Dates: start: 20011031

REACTIONS (1)
  - ALOPECIA [None]
